FAERS Safety Report 11069138 (Version 1)
Quarter: 2015Q2

REPORT INFORMATION
  Report Type: Report from Study
  Country: AT (occurrence: AT)
  Receive Date: 20150427
  Receipt Date: 20150427
  Transmission Date: 20150821
  Serious: Yes (Death, Hospitalization)
  Sender: FDA-Public Use
  Company Number: PHHY2014AT156386

PATIENT
  Sex: Female
  Weight: 95 kg

DRUGS (3)
  1. EVEROLIMUS [Suspect]
     Active Substance: EVEROLIMUS
     Indication: BREAST CANCER
     Dosage: 5 MG, QD
     Route: 048
     Dates: start: 20140923
  2. ABRAXANE//PACLITAXEL [Concomitant]
     Indication: PRODUCT USED FOR UNKNOWN INDICATION
     Dosage: UNK
     Route: 065
     Dates: start: 201401, end: 201404
  3. EXEMESTAN [Concomitant]
     Active Substance: EXEMESTANE
     Indication: BREAST CANCER
     Dosage: 25 MG, QD
     Route: 048
     Dates: start: 20140923

REACTIONS (20)
  - Neuralgia [Unknown]
  - Lymphoedema [Unknown]
  - Erythema [Unknown]
  - Dyspnoea exertional [Not Recovered/Not Resolved]
  - Malignant neoplasm progression [Fatal]
  - Ocular icterus [Unknown]
  - Atelectasis [Unknown]
  - Metastases to liver [Unknown]
  - Deep vein thrombosis [Unknown]
  - Yellow skin [Unknown]
  - Hyperthermia [Unknown]
  - Erysipelas [Recovered/Resolved]
  - Pleural effusion [Not Recovered/Not Resolved]
  - Metastases to bone [Unknown]
  - Jaundice [Not Recovered/Not Resolved]
  - Cholangitis [Unknown]
  - Stasis dermatitis [Unknown]
  - Generalised oedema [Unknown]
  - Ascites [Unknown]
  - Herpes zoster [Unknown]

NARRATIVE: CASE EVENT DATE: 20141007
